FAERS Safety Report 25332018 (Version 4)
Quarter: 2025Q2

REPORT INFORMATION
  Report Type: Spontaneous
  Country: US (occurrence: US)
  Receive Date: 20250519
  Receipt Date: 20250612
  Transmission Date: 20250716
  Serious: Yes (Hospitalization, Other)
  Sender: GILEAD
  Company Number: US-GILEAD-2025-0713724

PATIENT
  Age: 36 Year
  Weight: 89.8 kg

DRUGS (5)
  1. YESCARTA [Suspect]
     Active Substance: AXICABTAGENE CILOLEUCEL
     Indication: Diffuse large B-cell lymphoma
     Route: 065
     Dates: start: 20250224, end: 20250224
  2. CEFEPIME [Concomitant]
     Active Substance: CEFEPIME HYDROCHLORIDE
     Indication: Rhinovirus infection
     Route: 042
     Dates: start: 20250506, end: 20250508
  3. CEFEPIME [Concomitant]
     Active Substance: CEFEPIME HYDROCHLORIDE
     Indication: Enterovirus infection
  4. AZITHROMYCIN [Concomitant]
     Active Substance: AZITHROMYCIN
     Indication: Rhinovirus infection
     Dates: start: 20250507, end: 20250508
  5. AZITHROMYCIN [Concomitant]
     Active Substance: AZITHROMYCIN
     Indication: Enterovirus infection

REACTIONS (2)
  - Neutropenia [Recovered/Resolved]
  - White blood cell analysis abnormal [Recovered/Resolved]

NARRATIVE: CASE EVENT DATE: 20250408
